FAERS Safety Report 20428005 (Version 1)
Quarter: 2022Q1

REPORT INFORMATION
  Report Type: Spontaneous
  Country: US (occurrence: US)
  Receive Date: 20220204
  Receipt Date: 20220204
  Transmission Date: 20220423
  Serious: No
  Sender: FDA-Public Use
  Company Number: US-LUNDBECK-DKLU3043712

PATIENT
  Age: 32 Year
  Sex: Female

DRUGS (2)
  1. NORTHERA [Suspect]
     Active Substance: DROXIDOPA
     Indication: Orthostatic hypotension
     Route: 048
  2. NORTHERA [Suspect]
     Active Substance: DROXIDOPA
     Dosage: AS NEEDED TO FILL IN FOR BLOOD PRESSURE DROPS AND ORTHOSTATIC CHALLENGES
     Route: 048

REACTIONS (3)
  - Blood pressure decreased [Unknown]
  - Therapeutic product effect decreased [Unknown]
  - Off label use [Unknown]
